FAERS Safety Report 8766534 (Version 1)
Quarter: 2012Q4

REPORT INFORMATION
  Report Type: 
  Country: CN (occurrence: CN)
  Receive Date: 20120904
  Receipt Date: 20120904
  Transmission Date: 20130627
  Serious: Yes (Hospitalization)
  Sender: FDA-Public Use
  Company Number: CN-ASTRAZENECA-2012SE66006

PATIENT
  Sex: Female
  Weight: 42 kg

DRUGS (1)
  1. PLENDIL [Suspect]
     Indication: HYPERTENSION
     Route: 048
     Dates: start: 20110925, end: 20111025

REACTIONS (3)
  - Chest discomfort [Unknown]
  - Oedema peripheral [Recovering/Resolving]
  - Palpitations [Unknown]
